FAERS Safety Report 7934031-1 (Version None)
Quarter: 2011Q4

REPORT INFORMATION
  Report Type: 
  Country: None (occurrence: None)
  Receive Date: 20111122
  Receipt Date: 20100305
  Transmission Date: 20120403
  Serious: Yes (Other)
  Sender: FDA-Public Use
  Company Number: JP-ROCHE-GNE243966

PATIENT
  Sex: Male
  Weight: 64.068 kg

DRUGS (1)
  1. RANIBIZUMAB [Suspect]
     Indication: MACULAR DEGENERATION
     Route: 050
     Dates: start: 20060912

REACTIONS (4)
  - VISUAL ACUITY REDUCED [None]
  - OVERDOSE [None]
  - VISUAL IMPAIRMENT [None]
  - INTRAOCULAR PRESSURE INCREASED [None]
